FAERS Safety Report 11794051 (Version 1)
Quarter: 2015Q4

REPORT INFORMATION
  Report Type: Spontaneous
  Country: US (occurrence: US)
  Receive Date: 20151202
  Receipt Date: 20151202
  Transmission Date: 20160305
  Serious: No
  Sender: FDA-Public Use
  Company Number: US-009507513-1511USA014209

PATIENT
  Sex: Female

DRUGS (1)
  1. NEXPLANON [Suspect]
     Active Substance: ETONOGESTREL
     Dosage: UNK
     Route: 059
     Dates: start: 201507

REACTIONS (3)
  - Menorrhagia [Unknown]
  - Amenorrhoea [Unknown]
  - Menorrhagia [Unknown]

NARRATIVE: CASE EVENT DATE: 201509
